FAERS Safety Report 9290319 (Version 3)
Quarter: 2013Q3

REPORT INFORMATION
  Report Type: Report from Study
  Country: US (occurrence: US)
  Receive Date: 20130515
  Receipt Date: 20130925
  Transmission Date: 20140515
  Serious: No
  Sender: FDA-Public Use
  Company Number: US-NOVOPROD-376146

PATIENT
  Age: 63 Year
  Sex: Male
  Weight: 82.7 kg

DRUGS (4)
  1. LIRAGLUTIDE FLEXPEN [Suspect]
     Indication: TYPE 2 DIABETES MELLITUS
     Dosage: 1.8 U, QD
     Route: 058
     Dates: start: 20121017, end: 20121203
  2. LISINOPRIL [Concomitant]
     Indication: HYPERTENSION
     Dosage: 2 MG, QD
     Route: 048
     Dates: start: 2010
  3. METFORMIN [Concomitant]
     Indication: DIABETES MELLITUS
     Dosage: 1000 MG, QD
     Route: 048
     Dates: start: 20121017
  4. NYSTATIN/TRIAMCINOLONE [Concomitant]
     Indication: RASH
     Dosage: 30 MG, QD
     Route: 061
     Dates: start: 20121024, end: 20121113

REACTIONS (1)
  - Lipase increased [Not Recovered/Not Resolved]
